FAERS Safety Report 5865323-8 (Version None)
Quarter: 2008Q3

REPORT INFORMATION
  Report Type: 
  Country: None (occurrence: None)
  Receive Date: 20080829
  Receipt Date: 20080820
  Transmission Date: 20090109
  Serious: Yes (Hospitalization)
  Sender: FDA-Public Use
  Company Number: US-MERCK-0808USA01314

PATIENT
  Age: 30 Year
  Sex: Female

DRUGS (1)
  1. SINGULAIR [Suspect]
     Indication: ASTHMA
     Route: 048
     Dates: start: 20080804, end: 20080805

REACTIONS (4)
  - DYSPNOEA [None]
  - IDIOSYNCRATIC DRUG REACTION [None]
  - PALPITATIONS [None]
  - TREMOR [None]
